FAERS Safety Report 25245051 (Version 1)
Quarter: 2025Q2

REPORT INFORMATION
  Report Type: Spontaneous
  Country: US (occurrence: None)
  Receive Date: 20250425
  Receipt Date: 20250425
  Transmission Date: 20250717
  Serious: Yes (Disabling)
  Sender: FDA-CTU
  Company Number: None

PATIENT
  Age: 31 Year
  Sex: Female
  Weight: 71.1 kg

DRUGS (1)
  1. CYCLOSPORINE [Suspect]
     Active Substance: CYCLOSPORINE
     Indication: Dry eye
     Dosage: 60 DROP(S) EVERY 12 HOURS OPHTHALMIC
     Route: 047
     Dates: start: 20250421, end: 20250425

REACTIONS (2)
  - Dizziness [None]
  - Confusional state [None]

NARRATIVE: CASE EVENT DATE: 20250425
